FAERS Safety Report 15138324 (Version 1)
Quarter: 2018Q3

REPORT INFORMATION
  Report Type: Spontaneous
  Country: US (occurrence: US)
  Receive Date: 20180713
  Receipt Date: 20180713
  Transmission Date: 20181010
  Serious: Yes (Other)
  Sender: FDA-Public Use
  Company Number: US-TESARO INC.-TS50-00363-2018USA

PATIENT
  Sex: Female

DRUGS (4)
  1. PACLITAXEL. [Suspect]
     Active Substance: PACLITAXEL
     Indication: UTERINE CANCER
     Route: 065
  2. CARBOPLATIN. [Suspect]
     Active Substance: CARBOPLATIN
     Indication: UTERINE CANCER
     Route: 065
  3. VARUBI [Suspect]
     Active Substance: ROLAPITANT
     Indication: VOMITING
  4. VARUBI [Suspect]
     Active Substance: ROLAPITANT
     Indication: NAUSEA
     Dosage: 2 TABS, 180MG, 2 HOURS, PRIOR TO CHEMO
     Route: 048

REACTIONS (5)
  - Tongue ulceration [Unknown]
  - Bone pain [Unknown]
  - Uterine haemorrhage [Unknown]
  - Diarrhoea [Unknown]
  - Full blood count abnormal [Unknown]
